FAERS Safety Report 4268783-1 (Version None)
Quarter: 2004Q1

REPORT INFORMATION
  Report Type: 
  Country: None (occurrence: None)
  Receive Date: 20040112
  Receipt Date: 20040112
  Transmission Date: 20041129
  Serious: Yes (Hospitalization)
  Sender: FDA-Public Use
  Company Number: None

PATIENT
  Age: 69 Year
  Sex: Male

DRUGS (11)
  1. SIMVASTATIN [Suspect]
  2. GEMFIBROZIL [Suspect]
  3. ASPIRIN [Concomitant]
  4. HYDROCHLOROTHIAZIDE [Concomitant]
  5. NPH INSULIN [Concomitant]
  6. INSULIN REGULAR [Concomitant]
  7. BUMETANIDE [Concomitant]
  8. ISOSORBIDE MONONITRATE [Concomitant]
  9. METOPROLOL [Concomitant]
  10. PROPOXYPHENE HCL [Concomitant]
  11. RABEPRAZOLE SODIUM [Concomitant]

REACTIONS (16)
  - ALANINE AMINOTRANSFERASE INCREASED [None]
  - ASPARTATE AMINOTRANSFERASE INCREASED [None]
  - BLOOD CREATINE PHOSPHOKINASE INCREASED [None]
  - BLOOD CREATININE INCREASED [None]
  - BLOOD GLUCOSE INCREASED [None]
  - BLOOD UREA INCREASED [None]
  - BURNING SENSATION [None]
  - HAEMATOCRIT DECREASED [None]
  - HAEMOGLOBIN DECREASED [None]
  - MEDICATION ERROR [None]
  - MYOSITIS [None]
  - PAIN IN EXTREMITY [None]
  - PITTING OEDEMA [None]
  - RED BLOOD CELL SEDIMENTATION RATE INCREASED [None]
  - RHABDOMYOLYSIS [None]
  - TENDERNESS [None]
